FAERS Safety Report 13288706 (Version 1)
Quarter: 2017Q1

REPORT INFORMATION
  Report Type: Spontaneous
  Country: US (occurrence: US)
  Receive Date: 20170302
  Receipt Date: 20170302
  Transmission Date: 20170428
  Serious: Yes (Hospitalization, Other)
  Sender: FDA-Public Use
  Company Number: US-ALEXION-A201701903

PATIENT
  Sex: Female

DRUGS (2)
  1. SOLIRIS [Suspect]
     Active Substance: ECULIZUMAB
     Indication: PAROXYSMAL NOCTURNAL HAEMOGLOBINURIA
     Route: 042
  2. DEX /00048102/ [Suspect]
     Active Substance: DEXTROMETHORPHAN HYDROBROMIDE
     Indication: PREMEDICATION
     Route: 065

REACTIONS (5)
  - Pruritus [Unknown]
  - Haemolysis [Recovered/Resolved]
  - Adverse drug reaction [Unknown]
  - Panic attack [Unknown]
  - Drug intolerance [Unknown]

NARRATIVE: CASE EVENT DATE: 20170218
